FAERS Safety Report 4753834-8 (Version None)
Quarter: 2005Q3

REPORT INFORMATION
  Report Type: 
  Country: None (occurrence: None)
  Receive Date: 20050823
  Receipt Date: 20050610
  Transmission Date: 20060218
  Serious: No
  Sender: FDA-Public Use
  Company Number: 215242

PATIENT
  Age: 49 Year
  Sex: Male

DRUGS (2)
  1. RAPTIVA [Suspect]
     Indication: PSORIASIS
     Dosage: 1/WEEK
     Dates: start: 20050608
  2. VITAMINS (VITAMINS NOS) [Concomitant]

REACTIONS (1)
  - EPISTAXIS [None]
